FAERS Safety Report 14977868 (Version 1)
Quarter: 2018Q2

REPORT INFORMATION
  Report Type: Spontaneous
  Country: US (occurrence: US)
  Receive Date: 20180515
  Receipt Date: 20180515
  Transmission Date: 20180711
  Serious: Yes (Life-Threatening)
  Sender: FDA-Public Use
  Company Number: None

PATIENT
  Age: 55 Year
  Sex: Male
  Weight: 110 kg

DRUGS (1)
  1. ANTI-THYMOCYTE GLOBUIN [Suspect]
     Active Substance: THYMOCYTE IMMUNE GLOBULIN NOS
     Indication: RENAL TRANSPLANT
     Dates: start: 20180508, end: 20180509

REACTIONS (6)
  - Cardiac arrest [None]
  - Pyrexia [None]
  - Respiratory arrest [None]
  - Tachycardia [None]
  - Infusion related reaction [None]
  - Hypoxia [None]

NARRATIVE: CASE EVENT DATE: 20180509
